FAERS Safety Report 18420084 (Version 3)
Quarter: 2020Q4

REPORT INFORMATION
  Report Type: Spontaneous
  Country: CA (occurrence: CA)
  Receive Date: 20201023
  Receipt Date: 20201103
  Transmission Date: 20210114
  Serious: Yes (Death, Life-Threatening, Hospitalization, Other)
  Sender: FDA-Public Use
  Company Number: CA-PFIZER INC-2020410980

PATIENT
  Age: 75 Year
  Sex: Female
  Weight: 54 kg

DRUGS (2)
  1. DAURISMO [Suspect]
     Active Substance: GLASDEGIB
     Dosage: 100 MG, UNK
     Dates: start: 20200924, end: 20201016
  2. CYTARABINE. [Concomitant]
     Active Substance: CYTARABINE
     Indication: ACUTE MYELOID LEUKAEMIA
     Dosage: UNK
     Dates: start: 20200924, end: 20201003

REACTIONS (5)
  - Clostridium difficile colitis [Fatal]
  - Pneumonitis [Fatal]
  - Respiratory failure [Fatal]
  - Pleural effusion [Fatal]
  - Pneumonia [Fatal]

NARRATIVE: CASE EVENT DATE: 20201016
